FAERS Safety Report 16237020 (Version 1)
Quarter: 2019Q2

REPORT INFORMATION
  Report Type: Spontaneous
  Country: ES (occurrence: ES)
  Receive Date: 20190425
  Receipt Date: 20190425
  Transmission Date: 20190711
  Serious: Yes (Other)
  Sender: FDA-Public Use
  Company Number: ES-ACCORD-123907

PATIENT
  Age: 77 Year
  Sex: Male

DRUGS (8)
  1. OMEPRAZOLE. [Concomitant]
     Active Substance: OMEPRAZOLE
     Dosage: 20 MG EVERY 24 HOURS
     Route: 048
     Dates: start: 20031229
  2. SERTRALINE [Concomitant]
     Active Substance: SERTRALINE HYDROCHLORIDE
     Indication: DEPRESSION
     Dosage: 100 MG EVERY 24 HOURS
     Route: 048
     Dates: start: 20171212
  3. BETMIGA [Concomitant]
     Active Substance: MIRABEGRON
     Dosage: 50 MG EVERY 24 HOURS
     Route: 048
     Dates: start: 20150121
  4. METAMIZOLE SODIUM [Concomitant]
     Active Substance: METAMIZOLE SODIUM
     Dosage: 575 MG EVERY 8 HOURS
     Route: 048
     Dates: start: 20181119
  5. LOVASTATIN. [Concomitant]
     Active Substance: LOVASTATIN
     Dosage: 20 MG EVERY 24 HOURS
     Route: 048
     Dates: start: 20150930
  6. CISPLATIN. [Suspect]
     Active Substance: CISPLATIN
     Indication: TRANSITIONAL CELL CARCINOMA
     Dosage: 136 MG
     Route: 042
     Dates: start: 20181120, end: 201902
  7. PARACETAMOL [Concomitant]
     Active Substance: ACETAMINOPHEN
     Dosage: 1 GRAM EVERY 8 HOURS
     Route: 048
     Dates: start: 20181119
  8. ENALAPRIL [Concomitant]
     Active Substance: ENALAPRIL
     Dosage: 20 MG EVERY 24 HOURS
     Route: 048
     Dates: start: 20190130

REACTIONS (2)
  - Hypoacusis [Recovered/Resolved]
  - Amnestic disorder [Recovered/Resolved]

NARRATIVE: CASE EVENT DATE: 20190211
